FAERS Safety Report 9698177 (Version 2)
Quarter: 2013Q4

REPORT INFORMATION
  Report Type: Report from Study
  Country: US (occurrence: US)
  Receive Date: 20131120
  Receipt Date: 20131211
  Transmission Date: 20140711
  Serious: Yes (Hospitalization)
  Sender: FDA-Public Use
  Company Number: US-MERCK-1311USA005338

PATIENT
  Age: 49 Year
  Sex: Female
  Weight: 69.2 kg

DRUGS (6)
  1. VORINOSTAT [Suspect]
     Indication: ACUTE MYELOID LEUKAEMIA
     Dosage: 500 MG, TID INDUCTION AND RE-INDUCTION (CYCLE=28 DAYS)
     Route: 048
     Dates: start: 20130918, end: 20130920
  2. VORINOSTAT [Suspect]
     Dosage: 500 MG, TID CONSOLIDATION (CYCLE=28 DAYS, MAX 4 CYCLES)
     Route: 048
     Dates: start: 20131029, end: 20131031
  3. CYTARABINE [Suspect]
     Indication: ACUTE MYELOID LEUKAEMIA
     Dosage: UNK MG/M2, QD
     Route: 042
     Dates: start: 20130921, end: 20130924
  4. CYTARABINE [Suspect]
     Dosage: 750MG/M2/DAY CONTINUOUS IV INFUSION ON DAYS 4-6
     Route: 042
     Dates: start: 20131101, end: 20131103
  5. DAUNORUBICIN HYDROCHLORIDE [Suspect]
     Indication: ACUTE MYELOID LEUKAEMIA
     Dosage: 12 MG/M2, QD IV OVER 15 MIN ON DAYS 4-6
     Route: 042
     Dates: start: 20130921, end: 20130923
  6. DAUNORUBICIN HYDROCHLORIDE [Suspect]
     Dosage: 8 MG/M2, QD IV OVER 15 MIN ON DAYS 4-5
     Route: 042
     Dates: start: 20131101, end: 20131102

REACTIONS (3)
  - Dizziness [Recovered/Resolved with Sequelae]
  - Syncope [Recovered/Resolved with Sequelae]
  - Febrile neutropenia [Recovered/Resolved with Sequelae]
